FAERS Safety Report 16561508 (Version 1)
Quarter: 2019Q3

REPORT INFORMATION
  Report Type: Spontaneous
  Country: AU (occurrence: AU)
  Receive Date: 20190711
  Receipt Date: 20190711
  Transmission Date: 20191004
  Serious: Yes (Other)
  Sender: FDA-Public Use
  Company Number: AU-BAUSCH-BL-2019-019214

PATIENT
  Age: 66 Year
  Sex: Female

DRUGS (3)
  1. EVEROLIMUS. [Suspect]
     Active Substance: EVEROLIMUS
     Indication: PRODUCT USED FOR UNKNOWN INDICATION
     Route: 065
  2. PREDNISOLONE. [Suspect]
     Active Substance: PREDNISOLONE
     Indication: PRODUCT USED FOR UNKNOWN INDICATION
     Route: 065
  3. MYCOPHENOLATE MOFETIL. [Suspect]
     Active Substance: MYCOPHENOLATE MOFETIL
     Indication: PRODUCT USED FOR UNKNOWN INDICATION
     Route: 065

REACTIONS (11)
  - Agitation [Unknown]
  - Confusional state [Unknown]
  - Product use in unapproved indication [Unknown]
  - Chest pain [Unknown]
  - Tachycardia [Unknown]
  - Rash vesicular [Unknown]
  - Varicella zoster virus infection [Unknown]
  - Abdominal pain [Unknown]
  - Somnolence [Unknown]
  - Thrombocytopenia [Unknown]
  - Hypotension [Unknown]
